FAERS Safety Report 4795453-3 (Version None)
Quarter: 2005Q4

REPORT INFORMATION
  Report Type: 
  Country: None (occurrence: None)
  Receive Date: 20051006
  Receipt Date: 20050916
  Transmission Date: 20060501
  Serious: No
  Sender: FDA-Public Use
  Company Number: 805#9#2005-00058

PATIENT
  Age: 5 Day
  Sex: Male

DRUGS (2)
  1. ALPROSTADIL [Suspect]
     Indication: HEART DISEASE CONGENITAL
     Dosage: 21.5 NG/KG/MIN INTRAVENOUS DRIP
     Route: 041
     Dates: start: 20050224, end: 20050613
  2. MENATETRENONE (MENATETRENONE) [Concomitant]

REACTIONS (2)
  - APNOEA [None]
  - DRUG EFFECT DECREASED [None]
